FAERS Safety Report 23865975 (Version 2)
Quarter: 2024Q2

REPORT INFORMATION
  Report Type: Spontaneous
  Country: RU (occurrence: RU)
  Receive Date: 20240517
  Receipt Date: 20240523
  Transmission Date: 20240716
  Serious: Yes (Hospitalization, Other)
  Sender: FDA-Public Use
  Company Number: RU-ORGANON-O2405RUS001332

PATIENT
  Age: 67 Year
  Sex: Male

DRUGS (1)
  1. DIPROSPAN [Suspect]
     Active Substance: BETAMETHASONE DIPROPIONATE\BETAMETHASONE SODIUM PHOSPHATE
     Indication: Pain
     Dosage: 3 INTRAMUSCULAR INJECTIONS WITH AN INTERVAL OF 1 DAY EACH
     Route: 030
     Dates: start: 20240430

REACTIONS (7)
  - Cholelithiasis [Unknown]
  - Gastric ulcer [Unknown]
  - Ascites [Unknown]
  - Metastases to liver [Unknown]
  - Pain [Unknown]
  - Abdominal discomfort [Unknown]
  - Off label use [Unknown]

NARRATIVE: CASE EVENT DATE: 20240101
